FAERS Safety Report 4753814-2 (Version None)
Quarter: 2005Q3

REPORT INFORMATION
  Report Type: 
  Country: None (occurrence: None)
  Receive Date: 20050825
  Receipt Date: 20050818
  Transmission Date: 20060218
  Serious: Yes (Death)
  Sender: FDA-Public Use
  Company Number: US-2005-003386

PATIENT
  Age: 50 Year
  Sex: Female

DRUGS (1)
  1. BETASERON [Suspect]
     Indication: MULTIPLE SCLEROSIS
     Dosage: EVERY 2D, SUBCUTANEOUS
     Route: 058
     Dates: start: 20020726, end: 20030101

REACTIONS (2)
  - ORAL INTAKE REDUCED [None]
  - PAIN IN JAW [None]
